FAERS Safety Report 4865184-X (Version None)
Quarter: 2005Q4

REPORT INFORMATION
  Report Type: 
  Country: None (occurrence: None)
  Receive Date: 20051223
  Receipt Date: 20051219
  Transmission Date: 20060501
  Serious: Yes (Other)
  Sender: FDA-Public Use
  Company Number: CA-GLAXOSMITHKLINE-A0586750A

PATIENT
  Sex: Male

DRUGS (3)
  1. AZT [Suspect]
     Indication: HIV INFECTION
     Route: 065
  2. 3TC [Suspect]
     Indication: HIV INFECTION
     Route: 065
  3. ZIAGEN [Suspect]
     Indication: HIV INFECTION
     Route: 065

REACTIONS (1)
  - LIPOATROPHY [None]
